FAERS Safety Report 13865617 (Version 3)
Quarter: 2017Q4

REPORT INFORMATION
  Report Type: Spontaneous
  Country: CA (occurrence: CA)
  Receive Date: 20170814
  Receipt Date: 20171013
  Transmission Date: 20180320
  Serious: Yes (Death, Hospitalization)
  Sender: FDA-Public Use
  Company Number: CA-SA-2017SA147408

PATIENT
  Age: 80 Year
  Sex: Female

DRUGS (3)
  1. KEVZARA [Suspect]
     Active Substance: SARILUMAB
     Route: 065
     Dates: start: 20170714
  2. PREDNISONE. [Concomitant]
     Active Substance: PREDNISONE
  3. ELIQUIS [Concomitant]
     Active Substance: APIXABAN

REACTIONS (7)
  - Gastrointestinal haemorrhage [Fatal]
  - Renal impairment [Unknown]
  - Functional gastrointestinal disorder [Unknown]
  - Cardiac arrest [Unknown]
  - Pyrexia [Unknown]
  - Abdominal pain upper [Unknown]
  - Respiratory arrest [Unknown]

NARRATIVE: CASE EVENT DATE: 20170807
